FAERS Safety Report 6544355-0 (Version None)
Quarter: 2010Q1

REPORT INFORMATION
  Report Type: 
  Country: None (occurrence: None)
  Receive Date: 20100120
  Receipt Date: 20100120
  Transmission Date: 20100710
  Serious: No
  Sender: FDA-Public Use
  Company Number: None

PATIENT

DRUGS (2)
  1. FENTANYL [Suspect]
     Indication: PAIN MANAGEMENT
     Dosage: 100MCG VIAL IV ONCE
     Route: 042
     Dates: start: 20100115, end: 20100115
  2. FENTANYL [Suspect]
     Indication: PROCEDURAL PAIN
     Dosage: 100MCG VIAL IV ONCE
     Route: 042
     Dates: start: 20100115, end: 20100115

REACTIONS (2)
  - INTERCEPTED DRUG ADMINISTRATION ERROR [None]
  - MEDICATION ERROR [None]
